FAERS Safety Report 10897502 (Version 1)
Quarter: 2015Q1

REPORT INFORMATION
  Report Type: Spontaneous
  Country: US (occurrence: US)
  Receive Date: 20150309
  Receipt Date: 20150309
  Transmission Date: 20150721
  Serious: Yes (Other)
  Sender: FDA-Public Use
  Company Number: US-PFIZER INC-2015080630

PATIENT
  Age: 21 Year
  Sex: Female

DRUGS (1)
  1. SERTRALINE HCL [Suspect]
     Active Substance: SERTRALINE HYDROCHLORIDE
     Dosage: 100 MG, DAILY

REACTIONS (4)
  - Myalgia [Recovered/Resolved]
  - Swelling [Recovered/Resolved]
  - Rhabdomyolysis [Recovered/Resolved]
  - Fatigue [Recovered/Resolved]
